FAERS Safety Report 23184677 (Version 1)
Quarter: 2023Q4

REPORT INFORMATION
  Report Type: Spontaneous
  Country: US (occurrence: US)
  Receive Date: 20231115
  Receipt Date: 20231115
  Transmission Date: 20240109
  Serious: No
  Sender: FDA-Public Use
  Company Number: US-BEH-2021132183

PATIENT
  Age: 70 Year
  Sex: Female

DRUGS (13)
  1. HIZENTRA [Suspect]
     Active Substance: HUMAN IMMUNOGLOBULIN G
     Indication: Immunodeficiency common variable
     Dosage: 17 GRAM (85ML)
     Route: 065
  2. HIZENTRA [Suspect]
     Active Substance: HUMAN IMMUNOGLOBULIN G
     Dosage: 20 GRAM, QW
     Route: 065
  3. ZOLOFT [Concomitant]
     Active Substance: SERTRALINE HYDROCHLORIDE
  4. XARELTO [Concomitant]
     Active Substance: RIVAROXABAN
  5. TRIAMCINOLON [TRIAMCINOLONE ACETONIDE] [Concomitant]
  6. SOLU-CORTEF [Concomitant]
     Active Substance: HYDROCORTISONE SODIUM SUCCINATE
  7. ASPIRIN [Concomitant]
     Active Substance: ASPIRIN
  8. PREDNISONE [Concomitant]
     Active Substance: PREDNISONE
  9. TYLENOL [Concomitant]
     Active Substance: ACETAMINOPHEN
  10. RECLAST [Concomitant]
     Active Substance: ZOLEDRONIC ACID
  11. LISINOPRIL [Concomitant]
     Active Substance: LISINOPRIL
  12. MAGNESIUM [Concomitant]
     Active Substance: MAGNESIUM
  13. VITAMIN D3 [Concomitant]
     Active Substance: CHOLECALCIFEROL

REACTIONS (9)
  - Injection site erythema [Recovered/Resolved]
  - Product administration error [Recovered/Resolved]
  - Injection site pruritus [Recovered/Resolved]
  - Product administration error [Recovered/Resolved]
  - Injection site urticaria [Recovered/Resolved]
  - Product administration error [Recovered/Resolved]
  - Fatigue [Recovered/Resolved]
  - Vaccination site erythema [Recovered/Resolved]
  - Vaccination site pruritus [Recovered/Resolved]
